FAERS Safety Report 7675094-0 (Version None)
Quarter: 2011Q3

REPORT INFORMATION
  Report Type: 
  Country: None (occurrence: None)
  Receive Date: 20110810
  Receipt Date: 20110803
  Transmission Date: 20111222
  Serious: Yes (Hospitalization, Other)
  Sender: FDA-Public Use
  Company Number: US-MERCK-1102USA02320

PATIENT
  Age: 68 Year
  Sex: Female
  Weight: 62 kg

DRUGS (7)
  1. FOSAMAX [Suspect]
     Indication: OSTEOPOROSIS PROPHYLAXIS
     Route: 048
     Dates: start: 19980101, end: 20010522
  2. VITAMINS (UNSPECIFIED) [Concomitant]
     Route: 065
     Dates: start: 19900101
  3. NEXIUM [Suspect]
     Indication: GASTROOESOPHAGEAL REFLUX DISEASE
     Route: 065
     Dates: start: 20050401, end: 20090701
  4. FOSAMAX [Suspect]
     Route: 048
     Dates: start: 20010523, end: 20051026
  5. FOSAMAX [Suspect]
     Indication: OSTEOPENIA
     Route: 048
     Dates: start: 19980101, end: 20010522
  6. BONIVA [Suspect]
     Indication: OSTEOPOROSIS PROPHYLAXIS
     Route: 048
     Dates: start: 20051226, end: 20090727
  7. FOSAMAX [Suspect]
     Route: 048
     Dates: start: 20010523, end: 20051026

REACTIONS (24)
  - DEAFNESS NEUROSENSORY [None]
  - HIATUS HERNIA [None]
  - RECTAL POLYP [None]
  - HYPOTHYROIDISM [None]
  - GASTRITIS [None]
  - FEMUR FRACTURE [None]
  - ANAEMIA POSTOPERATIVE [None]
  - ARTHROPATHY [None]
  - GAIT DISTURBANCE [None]
  - SPINAL COLUMN STENOSIS [None]
  - HYPERGLYCAEMIA [None]
  - THYROID NEOPLASM [None]
  - GASTROOESOPHAGEAL REFLUX DISEASE [None]
  - HAEMORRHOIDS [None]
  - BRONCHITIS [None]
  - FOOT FRACTURE [None]
  - HYPERCHOLESTEROLAEMIA [None]
  - SCIATICA [None]
  - GINGIVAL DISORDER [None]
  - ESCHERICHIA INFECTION [None]
  - SPINAL OSTEOARTHRITIS [None]
  - DENTAL CARIES [None]
  - BURSITIS [None]
  - DIVERTICULUM [None]
